FAERS Safety Report 8088778-X (Version None)
Quarter: 2012Q1

REPORT INFORMATION
  Report Type: 
  Country: None (occurrence: None)
  Receive Date: 20120128
  Receipt Date: 20110601
  Transmission Date: 20120608
  Serious: No
  Sender: FDA-Public Use
  Company Number: US-ABBOTT-11P-163-0729859-00

PATIENT
  Sex: Female
  Weight: 69.008 kg

DRUGS (2)
  1. HUMIRA [Suspect]
     Indication: PSORIASIS
     Dosage: STARTED WITH LOADING DOSE OF 80 MG
     Dates: start: 20110524
  2. HUMIRA [Suspect]
     Route: 058
     Dates: start: 20110524

REACTIONS (1)
  - DRY MOUTH [None]
